FAERS Safety Report 12281469 (Version 1)
Quarter: 2016Q2

REPORT INFORMATION
  Report Type: Spontaneous
  Country: US (occurrence: US)
  Receive Date: 20160419
  Receipt Date: 20160419
  Transmission Date: 20160815
  Serious: Yes (Other)
  Sender: FDA-Public Use
  Company Number: US-SUNOVION-2016SUN000925

PATIENT
  Age: 14 Year
  Sex: Male

DRUGS (3)
  1. LATUDA [Suspect]
     Active Substance: LURASIDONE HYDROCHLORIDE
     Dosage: 40 MG, BID
     Route: 048
  2. AMITRIPTYLINE [Suspect]
     Active Substance: AMITRIPTYLINE
     Dosage: 50 MG, HS
  3. INVEGA [Suspect]
     Active Substance: PALIPERIDONE
     Dosage: 6 MG, BID

REACTIONS (2)
  - Chest pain [Unknown]
  - Electrocardiogram QT prolonged [Unknown]
